FAERS Safety Report 8931615 (Version 2)
Quarter: 2012Q4

REPORT INFORMATION
  Report Type: 
  Country: US (occurrence: US)
  Receive Date: 20121121
  Receipt Date: 20121212
  Transmission Date: 20130627
  Serious: Yes (Death, Hospitalization)
  Sender: FDA-Public Use
  Company Number: US-ASTELLAS-1089266

PATIENT
  Age: 65 Year
  Sex: Male

DRUGS (5)
  1. TARCEVA [Suspect]
     Indication: MALIGNANT RESPIRATORY TRACT NEOPLASM
     Route: 048
     Dates: start: 20060510, end: 20060706
  2. TARCEVA [Suspect]
     Indication: NON-SMALL CELL LUNG CANCER
  3. DECADRON [Concomitant]
     Route: 065
  4. ALBUTEROL INHALER [Concomitant]
     Dosage: 810*/240
     Route: 065
  5. FLORINEF [Concomitant]
     Route: 065

REACTIONS (4)
  - Disease progression [Fatal]
  - Respiratory failure [Fatal]
  - Pulmonary oedema [Fatal]
  - Staphylococcal sepsis [Fatal]
